FAERS Safety Report 4974990-2 (Version None)
Quarter: 2006Q2

REPORT INFORMATION
  Report Type: 
  Country: None (occurrence: None)
  Receive Date: 20060418
  Receipt Date: 20060316
  Transmission Date: 20061013
  Serious: Yes (Hospitalization)
  Sender: FDA-Public Use
  Company Number: FR-AMGEN-UK172783

PATIENT
  Age: 34 Year
  Sex: Male
  Weight: 63 kg

DRUGS (5)
  1. KEPIVANCE [Suspect]
     Indication: DRUG USE FOR UNKNOWN INDICATION
     Route: 042
     Dates: start: 20060206, end: 20060208
  2. CARMUSTINE [Concomitant]
     Route: 065
  3. MELPHALAN [Concomitant]
     Route: 065
  4. CYTARABINE [Concomitant]
     Route: 065
  5. ETOPOSIDE [Concomitant]

REACTIONS (4)
  - PRURITUS [None]
  - RASH [None]
  - THROMBOPHLEBITIS SUPERFICIAL [None]
  - VENOUS THROMBOSIS LIMB [None]
